FAERS Safety Report 14487718 (Version 3)
Quarter: 2018Q2

REPORT INFORMATION
  Report Type: Spontaneous
  Country: CA (occurrence: CA)
  Receive Date: 20180205
  Receipt Date: 20180509
  Transmission Date: 20180711
  Serious: Yes (Hospitalization, Other)
  Sender: FDA-Public Use
  Company Number: CA-PFIZER INC-2018047409

PATIENT
  Age: 87 Year
  Sex: Female

DRUGS (11)
  1. ESBRIET [Suspect]
     Active Substance: PIRFENIDONE
     Dosage: 801 MG, QD
     Route: 048
     Dates: start: 20170703
  2. ESBRIET [Suspect]
     Active Substance: PIRFENIDONE
     Indication: IDIOPATHIC PULMONARY FIBROSIS
     Dosage: 267 MG, TID
     Route: 048
     Dates: start: 20170624
  3. ESBRIET [Suspect]
     Active Substance: PIRFENIDONE
     Dosage: 1, 3X/DAY; 2, 3X/DAY
  4. TECTA [Suspect]
     Active Substance: PANTOPRAZOLE MAGNESIUM
     Dosage: UNK
  5. ESBRIET [Suspect]
     Active Substance: PIRFENIDONE
     Dosage: 801 MG, UNK
     Route: 048
     Dates: start: 201707
  6. ESBRIET [Suspect]
     Active Substance: PIRFENIDONE
     Dosage: 1602 MG, QD
     Route: 048
     Dates: start: 20170701
  7. ESBRIET [Suspect]
     Active Substance: PIRFENIDONE
     Dosage: UNK
  8. ESBRIET [Suspect]
     Active Substance: PIRFENIDONE
     Dosage: 2 DF, UNK
  9. ESBRIET [Suspect]
     Active Substance: PIRFENIDONE
     Dosage: 1608 MG, QD
     Route: 048
     Dates: start: 201707
  10. ESBRIET [Suspect]
     Active Substance: PIRFENIDONE
     Dosage: UNK, TID
     Route: 048
  11. ESBRIET [Suspect]
     Active Substance: PIRFENIDONE
     Dosage: UNK UNK, BID
     Route: 048
     Dates: start: 20170704

REACTIONS (13)
  - Feeling abnormal [Unknown]
  - Condition aggravated [Not Recovered/Not Resolved]
  - Dyspnoea [Not Recovered/Not Resolved]
  - Fatigue [Unknown]
  - Depression [Unknown]
  - Malaise [Unknown]
  - Dysphagia [Unknown]
  - Depression [Not Recovered/Not Resolved]
  - Nausea [Recovering/Resolving]
  - Asthenia [Unknown]
  - Malaise [Recovering/Resolving]
  - Anxiety [Not Recovered/Not Resolved]
  - Dyspnoea [Recovering/Resolving]

NARRATIVE: CASE EVENT DATE: 20170624
